FAERS Safety Report 11213921 (Version 2)
Quarter: 2015Q2

REPORT INFORMATION
  Report Type: Report from Study
  Country: US (occurrence: US)
  Receive Date: 20150623
  Receipt Date: 20150630
  Transmission Date: 20150821
  Serious: Yes (Other)
  Sender: FDA-Public Use
  Company Number: US-ABBVIE-15P-163-1410574-00

PATIENT
  Age: 61 Year
  Sex: Male

DRUGS (2)
  1. RIBAVIRIN. [Concomitant]
     Active Substance: RIBAVIRIN
     Indication: HEPATITIS C
     Dosage: TREATMENT COMPLETED
     Dates: start: 20150317, end: 20150608
  2. VIEKIRA PAK [Suspect]
     Active Substance: DASABUVIR\OMBITASVIR\PARITAPREVIR\RITONAVIR
     Indication: HEPATITIS C
     Dosage: TREATMENT COMPLETED
     Route: 048
     Dates: start: 20150317, end: 20150608

REACTIONS (10)
  - Thrombosis [Not Recovered/Not Resolved]
  - Cellulitis [Unknown]
  - Pain in extremity [Unknown]
  - Thrombophlebitis superficial [Unknown]
  - Deep vein thrombosis [Unknown]
  - Erythema [Unknown]
  - Oedema peripheral [Unknown]
  - Feeling hot [Unknown]
  - Bursitis [Unknown]
  - Arthritis bacterial [Unknown]

NARRATIVE: CASE EVENT DATE: 201504
